FAERS Safety Report 8610043-X (Version None)
Quarter: 2012Q3

REPORT INFORMATION
  Report Type: 
  Country: None (occurrence: None)
  Receive Date: 20120822
  Receipt Date: 20120720
  Transmission Date: 20120928
  Serious: Yes (Hospitalization)
  Sender: FDA-Public Use
  Company Number: US-009507513-1207USA008318

PATIENT

DRUGS (1)
  1. IMPLANON [Suspect]
     Indication: CONTRACEPTION
     Dosage: UNK
     Dates: start: 20111001, end: 20120720

REACTIONS (6)
  - SKIN DISCOLOURATION [None]
  - VOMITING [None]
  - PRODUCT QUALITY ISSUE [None]
  - MENORRHAGIA [None]
  - IMPLANT SITE HAEMATOMA [None]
  - OEDEMA PERIPHERAL [None]
